FAERS Safety Report 8186115-3 (Version None)
Quarter: 2012Q1

REPORT INFORMATION
  Report Type: 
  Country: None (occurrence: None)
  Receive Date: 20120306
  Receipt Date: 20120228
  Transmission Date: 20120608
  Serious: Yes (Hospitalization)
  Sender: FDA-Public Use
  Company Number: US-AMGEN-USASP2012013035

PATIENT
  Age: 63 Year
  Sex: Female

DRUGS (1)
  1. ENBREL [Suspect]
     Indication: PSORIASIS
     Dosage: 50 MG, QWK
     Dates: start: 20080101

REACTIONS (6)
  - FALL [None]
  - CEREBRAL HAEMORRHAGE [None]
  - CONTUSION [None]
  - FATIGUE [None]
  - DRUG INEFFECTIVE [None]
  - WEIGHT DECREASED [None]
